FAERS Safety Report 6589827-8 (Version None)
Quarter: 2010Q1

REPORT INFORMATION
  Report Type: 
  Country: None (occurrence: None)
  Receive Date: 20100219
  Receipt Date: 20100203
  Transmission Date: 20100710
  Serious: No
  Sender: FDA-Public Use
  Company Number: US-JNJFOC-20100202713

PATIENT
  Sex: Male
  Weight: 96.16 kg

DRUGS (5)
  1. DURAGESIC-100 [Suspect]
     Indication: BACK PAIN
     Dosage: 2 TO 4 PATCHES EVERY 48 HOURS
     Route: 062
  2. DILAUDID [Concomitant]
     Indication: PAIN
     Route: 048
  3. KLONOPIN [Concomitant]
     Indication: ANXIETY
     Dosage: 0.5 MG 2-3 TIMES A DAY
     Route: 048
  4. LEXAPRO [Concomitant]
     Indication: DEPRESSION
     Route: 048
  5. ADDERALL 30 [Concomitant]
     Indication: ATTENTION DEFICIT/HYPERACTIVITY DISORDER
     Route: 048

REACTIONS (3)
  - DRUG EFFECT DECREASED [None]
  - DRUG PRESCRIBING ERROR [None]
  - WRONG TECHNIQUE IN DRUG USAGE PROCESS [None]
